FAERS Safety Report 16536563 (Version 1)
Quarter: 2019Q3

REPORT INFORMATION
  Report Type: Spontaneous
  Country: JP (occurrence: JP)
  Receive Date: 20190706
  Receipt Date: 20190706
  Transmission Date: 20191004
  Serious: Yes (Other)
  Sender: FDA-Public Use
  Company Number: JP-SUN PHARMACEUTICAL INDUSTRIES LTD-2019R1-212804

PATIENT
  Age: 69 Year
  Sex: Male

DRUGS (6)
  1. METHYLPREDNISOLONE. [Suspect]
     Active Substance: METHYLPREDNISOLONE
     Indication: SYMPATHETIC OPHTHALMIA
     Dosage: 1 GRAM (3 DAYS)
     Route: 042
  2. METHOTREXATE. [Suspect]
     Active Substance: METHOTREXATE
     Indication: SYMPATHETIC OPHTHALMIA
     Dosage: 6 MILLIGRAM, WEEKLY(0.1MG/KG)
     Route: 065
  3. PREDNISOLONE. [Suspect]
     Active Substance: PREDNISOLONE
     Dosage: 2.5 MILLIGRAM, DAILY
     Route: 048
  4. PREDNISOLONE. [Suspect]
     Active Substance: PREDNISOLONE
     Indication: SYMPATHETIC OPHTHALMIA
     Dosage: 20 MILLIGRAM, DAILY
     Route: 048
  5. CYCLOSPORINE. [Concomitant]
     Active Substance: CYCLOSPORINE
     Indication: SYMPATHETIC OPHTHALMIA
     Dosage: 100 MILLIGRAM, DAILY
     Route: 065
  6. CYCLOSPORINE. [Concomitant]
     Active Substance: CYCLOSPORINE
     Dosage: 150 MILLIGRAM, DAILY(2.3 MG/KG)
     Route: 065

REACTIONS (5)
  - Hepatic failure [Unknown]
  - Intraocular pressure increased [Recovering/Resolving]
  - Disease recurrence [Recovering/Resolving]
  - Hyperglycaemia [Recovering/Resolving]
  - Pancytopenia [Unknown]
